FAERS Safety Report 5273664-0 (Version None)
Quarter: 2007Q1

REPORT INFORMATION
  Report Type: 
  Country: None (occurrence: None)
  Receive Date: 20070315
  Receipt Date: 20070315
  Transmission Date: 20070707
  Serious: Yes (Hospitalization)
  Sender: FDA-Public Use
  Company Number: None

PATIENT
  Age: 30 Year
  Sex: Male
  Weight: 75.2971 kg

DRUGS (5)
  1. LAPATINIB (GLAXO SMITH KLINE) [Suspect]
     Indication: MALIGNANT MELANOMA
     Dosage: 5250MG/ 2X WEEKLY ORAL
     Route: 048
     Dates: start: 20070226
  2. LAPATINIB (GLAXO SMITH KLINE) [Suspect]
     Indication: MALIGNANT MELANOMA
     Dosage: 5250MG/ 2X WEEKLY ORAL
     Route: 048
     Dates: start: 20070227
  3. LAPATINIB (GLAXO SMITH KLINE) [Suspect]
     Indication: MALIGNANT MELANOMA
     Dosage: 5250MG/ 2X WEEKLY ORAL
     Route: 048
     Dates: start: 20070305
  4. ABRAXANE (AMERICAN BIOSCIENCE) [Suspect]
     Indication: MALIGNANT MELANOMA
     Dosage: 197 MG IV
     Route: 042
     Dates: start: 20070228
  5. DILAUDID [Concomitant]

REACTIONS (3)
  - DIARRHOEA [None]
  - HAEMOGLOBIN DECREASED [None]
  - HAEMORRHOIDAL HAEMORRHAGE [None]
